FAERS Safety Report 9473168 (Version 1)
Quarter: 2013Q3

REPORT INFORMATION
  Report Type: Spontaneous
  Country: US (occurrence: US)
  Receive Date: 20130823
  Receipt Date: 20130823
  Transmission Date: 20140515
  Serious: No
  Sender: FDA-Public Use
  Company Number: US-BRISTOL-MYERS SQUIBB COMPANY-18711556

PATIENT
  Age: 77 Year
  Sex: Female

DRUGS (1)
  1. SPRYCEL [Suspect]
     Dosage: INTIALLY 100 MG, OFF FOR 2YEARS

REACTIONS (3)
  - Nausea [Unknown]
  - Fatigue [Unknown]
  - Diarrhoea [Unknown]
